FAERS Safety Report 23750056 (Version 1)
Quarter: 2024Q2

REPORT INFORMATION
  Report Type: Spontaneous
  Country: US (occurrence: US)
  Receive Date: 20240417
  Receipt Date: 20240417
  Transmission Date: 20240716
  Serious: No
  Sender: FDA-Public Use
  Company Number: US-TEVA-VS-3177730

PATIENT
  Age: 24 Year
  Sex: Female

DRUGS (1)
  1. METHYLPHENIDATE HYDROCHLORIDE [Suspect]
     Active Substance: METHYLPHENIDATE HYDROCHLORIDE
     Indication: Attention deficit hyperactivity disorder
     Route: 065

REACTIONS (3)
  - Drug ineffective [Unknown]
  - Asthenia [Unknown]
  - Attention deficit hyperactivity disorder [Unknown]
